FAERS Safety Report 13999481 (Version 2)
Quarter: 2017Q4

REPORT INFORMATION
  Report Type: Report from Study
  Country: CO (occurrence: CO)
  Receive Date: 20170922
  Receipt Date: 20171010
  Transmission Date: 20180321
  Serious: Yes (Hospitalization)
  Sender: FDA-Public Use
  Company Number: CO-ROCHE-1994170

PATIENT
  Age: 44 Year
  Sex: Female

DRUGS (2)
  1. CHLORPHENAMINE [Concomitant]
     Active Substance: CHLORPHENIRAMINE MALEATE
     Indication: ASTHMA
     Dosage: 7 CC
     Route: 048
  2. XOLAIR [Suspect]
     Active Substance: OMALIZUMAB
     Indication: ASTHMA
     Route: 058
     Dates: start: 20150605

REACTIONS (7)
  - Choking sensation [Not Recovered/Not Resolved]
  - Dermatitis contact [Unknown]
  - Dust allergy [Unknown]
  - Influenza [Not Recovered/Not Resolved]
  - Insomnia [Not Recovered/Not Resolved]
  - Asthmatic crisis [Not Recovered/Not Resolved]
  - Mite allergy [Unknown]

NARRATIVE: CASE EVENT DATE: 20170912
